FAERS Safety Report 7656942-7 (Version None)
Quarter: 2011Q3

REPORT INFORMATION
  Report Type: 
  Country: None (occurrence: None)
  Receive Date: 20110804
  Receipt Date: 20110721
  Transmission Date: 20111222
  Serious: Yes (Other)
  Sender: FDA-Public Use
  Company Number: US-CELGENEUS-163-21880-10042482

PATIENT
  Sex: Female
  Weight: 61.744 kg

DRUGS (25)
  1. NEXIUM [Concomitant]
     Dosage: 40 MILLIGRAM
     Route: 048
     Dates: start: 20090710
  2. ARIXTRA [Concomitant]
     Dosage: 10 MILLIGRAM
     Route: 048
     Dates: start: 20090803
  3. DEXAMETHASONE [Suspect]
     Indication: MULTIPLE MYELOMA
     Route: 065
  4. WARFARIN [Concomitant]
     Dosage: 1 MILLIGRAM
     Route: 048
     Dates: start: 20090803
  5. RESTORIL [Concomitant]
     Indication: INSOMNIA
     Dosage: 15 MILLIGRAM
     Route: 048
     Dates: start: 20090724
  6. XANAX [Concomitant]
     Indication: ANXIETY
     Dosage: .25 MILLIGRAM
     Route: 048
     Dates: start: 20090704
  7. WARFARIN [Concomitant]
     Dosage: 4 MILLIGRAM
     Route: 048
     Dates: start: 20090803
  8. REVLIMID [Suspect]
     Indication: MULTIPLE MYELOMA
     Dosage: 25 MILLIGRAM
     Route: 048
     Dates: start: 20090702, end: 20100207
  9. VITAMIN E [Concomitant]
     Indication: SUPPLEMENTATION THERAPY
     Dosage: 200 IU (INTERNATIONAL UNIT)
     Route: 048
     Dates: start: 20080717
  10. VALACYCLOVIR [Concomitant]
     Dosage: 500 MILLIGRAM
     Route: 048
     Dates: start: 20090709
  11. WARFARIN [Concomitant]
     Dosage: 3 MILLIGRAM
     Route: 048
     Dates: start: 20090702, end: 20090803
  12. IMODIUM [Concomitant]
     Dosage: 1 TABLESPOON
     Route: 048
     Dates: start: 20090801
  13. BENADRYL [Concomitant]
     Indication: ANAPHYLAXIS PROPHYLAXIS
     Dosage: 25 MILLIGRAM
     Route: 041
     Dates: start: 20090828
  14. PROCRIT [Concomitant]
     Dosage: 20000 IU
     Route: 041
     Dates: start: 20090710
  15. PROCRIT [Concomitant]
     Dosage: 10000 IU
     Route: 058
     Dates: start: 20090724
  16. VENOFER [Concomitant]
     Dosage: 200 MILLIGRAM
     Route: 041
     Dates: start: 20090925
  17. ALOXI [Concomitant]
     Dosage: .125 MILLIGRAM
     Route: 041
     Dates: start: 20090923
  18. CARFILZOMIB [Suspect]
     Indication: MULTIPLE MYELOMA
     Dosage: 20 MILLIGRAM/SQ. METER
     Route: 041
     Dates: start: 20090709, end: 20100122
  19. PROCRIT [Concomitant]
     Dosage: 30000 IU
     Route: 041
     Dates: start: 20090716
  20. NEUPOGEN [Concomitant]
     Indication: NEUTROPENIA
     Dosage: 350 MICROGRAM
     Route: 058
     Dates: start: 20090622
  21. NEUMEGA [Concomitant]
     Indication: THROMBOCYTOPENIA
     Dosage: 2.5 MILLIGRAM
     Route: 058
     Dates: start: 20090724
  22. ALOXI [Concomitant]
     Dosage: .25 MILLIGRAM
     Route: 041
     Dates: start: 20090630
  23. MORPHINE [Concomitant]
     Indication: PROPHYLAXIS
     Route: 065
     Dates: start: 20090630
  24. LEUKINE [Concomitant]
     Indication: LEUKOPENIA
     Route: 065
     Dates: start: 20110714
  25. PROCRIT [Concomitant]
     Dosage: 40000 IU
     Route: 041
     Dates: start: 20090722

REACTIONS (1)
  - BREAST CANCER METASTATIC [None]
